FAERS Safety Report 7351984-3 (Version None)
Quarter: 2011Q1

REPORT INFORMATION
  Report Type: 
  Country: None (occurrence: None)
  Receive Date: 20110315
  Receipt Date: 20110310
  Transmission Date: 20110831
  Serious: Yes (Other)
  Sender: FDA-Public Use
  Company Number: US-PFIZER INC-2011036827

PATIENT
  Sex: Female
  Weight: 68.5 kg

DRUGS (23)
  1. TRAZODONE [Concomitant]
     Indication: DEPRESSION
     Dosage: 300 MG, 1X/DAY
  2. ALPRAZOLAM [Concomitant]
     Indication: ANXIETY
     Dosage: 0.5 MG, AS NEEDED
  3. LIPITOR [Concomitant]
     Indication: BLOOD CHOLESTEROL INCREASED
     Dosage: 10 MG, 1X/DAY
  4. DULOXETINE [Concomitant]
     Dosage: UNK
  5. ZANAFLEX [Concomitant]
     Dosage: UNK
  6. DEPACON [Concomitant]
     Indication: MIGRAINE PROPHYLAXIS
     Dosage: 500 MG AT NIGHT AND 125 MG IN THE MORNING
  7. VALTREX [Concomitant]
     Dosage: 500 MG, UNK
  8. TRAMADOL [Concomitant]
     Dosage: 200 MG, UNK
  9. SKELAXIN [Concomitant]
     Indication: MUSCLE RELAXANT THERAPY
     Dosage: 800 MG, 3X/DAY AS NEEDED BUT NOT MORE THAN THREE DAYS A WEEK
  10. AMBIEN [Concomitant]
     Indication: SLEEP DISORDER
     Dosage: 20 MG, 1X/DAY
  11. ONDANSETRON [Concomitant]
     Indication: NAUSEA
     Dosage: UNK
  12. ONDANSETRON [Concomitant]
     Indication: MIGRAINE
  13. DIHYDROERGOTAMINE [Suspect]
     Indication: MIGRAINE
     Dosage: UNK
     Route: 042
     Dates: start: 20090701, end: 20090701
  14. XANAX [Concomitant]
     Indication: ANXIETY
     Dosage: 3 MG, DAILY
  15. FENTANYL [Concomitant]
     Indication: MIGRAINE
     Dosage: 600 MCG, AS NEEDED
     Route: 048
  16. DILAUDID [Concomitant]
     Indication: MIGRAINE
     Dosage: 400 MG, AS NEEDED
  17. CIMETIDINE [Concomitant]
     Indication: URTICARIA CHRONIC
     Dosage: 300 MG, 3X/DAY
  18. CYPROHEPTADINE [Concomitant]
     Indication: URTICARIA CHRONIC
     Dosage: 4 MG, 3X/DAY
  19. METHERGINE [Concomitant]
     Dosage: UNK
  20. PRISTIQ [Suspect]
     Indication: DEPRESSION
     Dosage: 100 MG, 1X/DAY
     Route: 048
     Dates: start: 20100719
  21. LAMICTAL [Concomitant]
     Indication: BIPOLAR DISORDER
     Dosage: 100 MG, UNK
  22. TRAZODONE [Concomitant]
     Indication: INSOMNIA
  23. PROMETHAZINE [Concomitant]
     Indication: MIGRAINE
     Dosage: 25 MG, AS NEEDED

REACTIONS (5)
  - DIZZINESS [None]
  - PAIN [None]
  - NAUSEA [None]
  - MYOCARDIAL INFARCTION [None]
  - HYPERTENSION [None]
